FAERS Safety Report 15158812 (Version 1)
Quarter: 2018Q3

REPORT INFORMATION
  Report Type: Spontaneous
  Country: US (occurrence: US)
  Receive Date: 20180620
  Receipt Date: 20180620
  Transmission Date: 20181010
  Serious: Yes (Other)
  Sender: FDA-Public Use
  Company Number: None

PATIENT
  Age: 68 Year
  Sex: Male
  Weight: 110.25 kg

DRUGS (14)
  1. NITROSTAT [Concomitant]
     Active Substance: NITROGLYCERIN
  2. CYCLOBENZAPRINE (FLEXERIL) [Concomitant]
  3. METFORMIN (GLUCOPHAGE) [Concomitant]
  4. METHADONE [Concomitant]
     Active Substance: METHADONE HYDROCHLORIDE
  5. ASPIRIN 81MG [Concomitant]
     Active Substance: ASPIRIN
  6. NEURONTIN [Concomitant]
     Active Substance: GABAPENTIN
  7. SENNOSIDES. [Concomitant]
     Active Substance: SENNOSIDES
  8. COREG [Suspect]
     Active Substance: CARVEDILOL
     Indication: CARDIAC FAILURE CONGESTIVE
     Dosage: ?          QUANTITY:1 TABLET(S);?
     Route: 048
     Dates: start: 20090801, end: 20171201
  9. NOVALIN R [Concomitant]
  10. METOPROLOL. [Concomitant]
     Active Substance: METOPROLOL
  11. LASIX [Concomitant]
     Active Substance: FUROSEMIDE
  12. NOVALIN N [Concomitant]
  13. POTASSIUM CHLORIDE. [Concomitant]
     Active Substance: POTASSIUM CHLORIDE
  14. LISINOPRIL. [Concomitant]
     Active Substance: LISINOPRIL

REACTIONS (4)
  - Nasal congestion [None]
  - Increased upper airway secretion [None]
  - Productive cough [None]
  - Sinus congestion [None]

NARRATIVE: CASE EVENT DATE: 20171201
